FAERS Safety Report 4618173-4 (Version None)
Quarter: 2005Q1

REPORT INFORMATION
  Report Type: 
  Country: None (occurrence: None)
  Receive Date: 20050322
  Receipt Date: 20050308
  Transmission Date: 20050727
  Serious: Yes (Other)
  Sender: FDA-Public Use
  Company Number: US-2005-003388

PATIENT
  Age: 48 Year
  Sex: Female

DRUGS (3)
  1. MIRENA [Suspect]
     Indication: MENORRHAGIA
     Dosage: 20 UG/DAY, CONT, INTRA-UTERINE
     Route: 015
     Dates: start: 20021001
  2. CLIMARA [Suspect]
     Indication: HORMONE REPLACEMENT THERAPY
     Dosage: 0.0375MG/D, CONT, TRANSDERMAL
     Route: 062
     Dates: start: 20030101, end: 20040801
  3. VENTOLIN HFA [Concomitant]

REACTIONS (3)
  - CYST [None]
  - LIVER DISORDER [None]
  - RENAL DISORDER [None]
